FAERS Safety Report 10515738 (Version 1)
Quarter: 2014Q4

REPORT INFORMATION
  Report Type: Spontaneous
  Country: US (occurrence: US)
  Receive Date: 20141014
  Receipt Date: 20141014
  Transmission Date: 20150528
  Serious: Yes (Other)
  Sender: FDA-Public Use
  Company Number: US-PFIZER INC-2014278945

PATIENT
  Sex: Male

DRUGS (2)
  1. VIAGRA [Suspect]
     Active Substance: SILDENAFIL CITRATE
     Dosage: UNK
  2. PROSCAR [Concomitant]
     Active Substance: FINASTERIDE
     Dosage: UNK

REACTIONS (3)
  - Erection increased [Not Recovered/Not Resolved]
  - Vasodilatation [Not Recovered/Not Resolved]
  - Phimosis [Not Recovered/Not Resolved]

NARRATIVE: CASE EVENT DATE: 20141007
